FAERS Safety Report 10855010 (Version 3)
Quarter: 2015Q2

REPORT INFORMATION
  Report Type: Spontaneous
  Country: IT (occurrence: IT)
  Receive Date: 20150223
  Receipt Date: 20150617
  Transmission Date: 20150821
  Serious: Yes (Life-Threatening)
  Sender: FDA-Public Use
  Company Number: IT-SA-2015SA020985

PATIENT
  Age: 34 Year
  Sex: Female

DRUGS (3)
  1. ANTRA [Concomitant]
     Active Substance: OMEPRAZOLE
     Route: 042
     Dates: start: 20141125
  2. ANTRA [Concomitant]
     Active Substance: OMEPRAZOLE
     Route: 048
     Dates: start: 20141204, end: 20141207
  3. RIFAMPICIN [Suspect]
     Active Substance: RIFAMPIN
     Indication: TUBERCULOSIS
     Route: 048
     Dates: start: 20141204, end: 20141204

REACTIONS (3)
  - Shock [Recovered/Resolved]
  - Hypotension [Recovered/Resolved]
  - Anuria [Recovered/Resolved]

NARRATIVE: CASE EVENT DATE: 20141204
